FAERS Safety Report 8016958-8 (Version None)
Quarter: 2012Q1

REPORT INFORMATION
  Report Type: 
  Country: None (occurrence: None)
  Receive Date: 20120102
  Receipt Date: 20111227
  Transmission Date: 20120608
  Serious: Yes (Hospitalization)
  Sender: FDA-Public Use
  Company Number: PHHY2011VE113449

PATIENT
  Sex: Female

DRUGS (7)
  1. ZOLEDRONOC ACID [Suspect]
     Dosage: 5 MG (ONCE A YEAR), UNK
     Route: 042
     Dates: start: 20090801
  2. OMEPRAZOLE [Concomitant]
     Dosage: 20 MG(DAILY), UNK
     Route: 048
  3. ZOLEDRONOC ACID [Suspect]
     Indication: OSTEOPOROSIS
     Dosage: 5 MG (ONCE A YEAR), UNK
     Route: 042
     Dates: start: 20080801
  4. BENICAR HCT [Concomitant]
     Dosage: 1 DF(12.5MG/20 MG)DAILY, UNK
     Route: 048
  5. ACETYLSALICYLIC ACID SRT [Concomitant]
     Indication: CARDIAC DISORDER
     Dosage: 1 UKN(1 TABLET IN THE NIGHT), UNK
     Route: 048
  6. ZOLEDRONOC ACID [Suspect]
     Dosage: 5 MG (ONCE A YEAR), UNK
     Route: 042
     Dates: start: 20110501
  7. LIPITOR [Concomitant]
     Dosage: 1 UKN(DAILY), UNK
     Route: 048

REACTIONS (3)
  - TINNITUS [None]
  - PAIN [None]
  - DIVERTICULITIS [None]
